FAERS Safety Report 9805975 (Version 1)
Quarter: 2014Q1

REPORT INFORMATION
  Report Type: Spontaneous
  Country: US (occurrence: US)
  Receive Date: 20140109
  Receipt Date: 20140109
  Transmission Date: 20141002
  Serious: Yes (Hospitalization)
  Sender: FDA-Public Use
  Company Number: PHEH2014US000722

PATIENT
  Sex: Female

DRUGS (1)
  1. GILENYA [Suspect]
     Dates: start: 201311

REACTIONS (1)
  - Chest pain [Unknown]
